FAERS Safety Report 15126695 (Version 8)
Quarter: 2020Q4

REPORT INFORMATION
  Report Type: Spontaneous
  Country: FR (occurrence: FR)
  Receive Date: 20180710
  Receipt Date: 20201123
  Transmission Date: 20210113
  Serious: Yes (Hospitalization, Other)
  Sender: FDA-Public Use
  Company Number: FR-PFIZER INC-2018273684

PATIENT
  Age: 87 Year
  Sex: Female

DRUGS (15)
  1. UVEDOSE [Suspect]
     Active Substance: CHOLECALCIFEROL
     Dosage: UNK
     Route: 048
     Dates: start: 201803, end: 201803
  2. CYMBALTA [Suspect]
     Active Substance: DULOXETINE HYDROCHLORIDE
     Indication: MIXED ANXIETY AND DEPRESSIVE DISORDER
     Dosage: 30 MG, 1X/DAY
     Route: 048
     Dates: start: 201803, end: 201803
  3. KLIPAL CODEINE [Suspect]
     Active Substance: ACETAMINOPHEN\CODEINE PHOSPHATE
     Indication: PAIN
     Dosage: 4 DF, 1X/DAY
     Route: 048
     Dates: start: 201803, end: 201803
  4. RIVOTRIL [Suspect]
     Active Substance: CLONAZEPAM
     Dosage: 2 MG, 1X/DAY
     Route: 048
     Dates: start: 201803, end: 201803
  5. DIAMICRON [Suspect]
     Active Substance: GLICLAZIDE
     Indication: TYPE 2 DIABETES MELLITUS
     Dosage: 150 MG, 1X/DAY
     Route: 048
     Dates: end: 201803
  6. SIMVASTATIN. [Suspect]
     Active Substance: SIMVASTATIN
     Dosage: 10 MG, 1X/DAY
     Route: 048
     Dates: start: 201803, end: 201803
  7. ALPRAZOLAM. [Suspect]
     Active Substance: ALPRAZOLAM
     Indication: MIXED ANXIETY AND DEPRESSIVE DISORDER
     Dosage: 0.25 MG, 1X/DAY
     Route: 048
     Dates: start: 201803, end: 201803
  8. RABEPRAZOLE /01417202/ [Suspect]
     Active Substance: RABEPRAZOLE SODIUM
     Dosage: 20 MG, 1X/DAY
     Route: 048
     Dates: start: 201803, end: 201803
  9. KAYEXALATE [Suspect]
     Active Substance: SODIUM POLYSTYRENE SULFONATE
     Dosage: 2 DF, 1X/DAY
     Route: 048
     Dates: start: 201803, end: 201803
  10. ASPIRINE PROTECT [Suspect]
     Active Substance: ASPIRIN
     Indication: CARDIAC DISORDER
     Dosage: 100 MG, 1X/DAY
     Route: 048
     Dates: start: 201803, end: 201803
  11. TRANSIPEG /00754501/ [Suspect]
     Active Substance: POLYETHYLENE GLYCOL 3350
     Indication: CONSTIPATION
     Dosage: UNK
     Route: 048
     Dates: start: 201803
  12. ADENURIC [Suspect]
     Active Substance: FEBUXOSTAT
     Dosage: 80 MG, ALTERNATE DAY
     Route: 048
     Dates: start: 201803, end: 201803
  13. LASILIX /00032601/ [Suspect]
     Active Substance: FUROSEMIDE
     Indication: HYPERTENSION
     Dosage: 60 MG, 1X/DAY
     Route: 048
     Dates: start: 201803, end: 201803
  14. RISPERDAL [Suspect]
     Active Substance: RISPERIDONE
     Indication: HALLUCINATION
     Dosage: 0.5 MG, 1X/DAY
     Route: 048
     Dates: start: 20180324, end: 20180326
  15. SOLUPRED /00016217/ [Suspect]
     Active Substance: PREDNISOLONE SODIUM METAZOATE
     Dosage: 20 MG, 1X/DAY
     Route: 048
     Dates: start: 201803, end: 201803

REACTIONS (6)
  - Head injury [Recovered/Resolved]
  - Fall [Recovered/Resolved]
  - Condition aggravated [Recovered/Resolved]
  - Constipation [Recovered/Resolved]
  - Urinary retention [Recovered/Resolved]
  - Pneumonia aspiration [Recovered/Resolved]

NARRATIVE: CASE EVENT DATE: 20180326
